FAERS Safety Report 19256389 (Version 1)
Quarter: 2021Q2

REPORT INFORMATION
  Report Type: Spontaneous
  Country: US (occurrence: US)
  Receive Date: 20210514
  Receipt Date: 20210514
  Transmission Date: 20210717
  Serious: No
  Sender: FDA-Public Use
  Company Number: US-JNJFOC-20210509248

PATIENT
  Age: 7 Decade
  Sex: Male
  Weight: 92.16 kg

DRUGS (1)
  1. MENS ROGAINE EXTRA STRENGTH [Suspect]
     Active Substance: MINOXIDIL
     Indication: ALOPECIA
     Dosage: DOSE: CAPFUL?LAST ADMINISTRATION ON: 05?MAY?2021
     Route: 061
     Dates: start: 202101

REACTIONS (1)
  - Overdose [Unknown]

NARRATIVE: CASE EVENT DATE: 202101
